FAERS Safety Report 7960086-4 (Version None)
Quarter: 2011Q4

REPORT INFORMATION
  Report Type: 
  Country: None (occurrence: None)
  Receive Date: 20111206
  Receipt Date: 20111129
  Transmission Date: 20120403
  Serious: Yes (Other)
  Sender: FDA-Public Use
  Company Number: PHHY2011BR104636

PATIENT
  Age: 2 Year
  Sex: Female

DRUGS (1)
  1. TRILEPTAL [Suspect]
     Indication: CONVULSION
     Dosage: 60 MG/ML, UNK
     Route: 048

REACTIONS (2)
  - PACHYGYRIA [None]
  - MOTOR DYSFUNCTION [None]
